FAERS Safety Report 9092769 (Version 2)
Quarter: 2013Q2

REPORT INFORMATION
  Report Type: Report from Study
  Country: CA (occurrence: CA)
  Receive Date: 20130201
  Receipt Date: 20130513
  Transmission Date: 20140414
  Serious: Yes (Other)
  Sender: FDA-Public Use
  Company Number: CA-JNJFOC-20130112530

PATIENT
  Sex: Female
  Weight: 87 kg

DRUGS (4)
  1. REMICADE [Suspect]
     Indication: CROHN^S DISEASE
     Route: 042
     Dates: end: 20130319
  2. REMICADE [Suspect]
     Indication: CROHN^S DISEASE
     Dosage: 400 (UNSPECIFIED)
     Route: 042
     Dates: start: 2005
  3. NEURONTIN [Concomitant]
     Route: 065
  4. AN UNKNOWN MEDICATION [Concomitant]
     Route: 065

REACTIONS (3)
  - Ileal stenosis [Recovered/Resolved]
  - Colitis ulcerative [Recovered/Resolved]
  - Drug ineffective [Unknown]
